FAERS Safety Report 22070253 (Version 1)
Quarter: 2023Q1

REPORT INFORMATION
  Report Type: Spontaneous
  Country: US (occurrence: US)
  Receive Date: 20230307
  Receipt Date: 20230307
  Transmission Date: 20230418
  Serious: No
  Sender: FDA-Public Use
  Company Number: US-MYLANLABS-2023M1022398

PATIENT
  Sex: Female
  Weight: 61.23 kg

DRUGS (1)
  1. GABAPENTIN [Suspect]
     Active Substance: GABAPENTIN
     Indication: Trigeminal neuralgia
     Dosage: 300 MILLIGRAM, BID, (2 DOSE A CAPSULE A DAY)
     Route: 065

REACTIONS (1)
  - Off label use [Unknown]
